FAERS Safety Report 9387293 (Version 2)
Quarter: 2013Q3

REPORT INFORMATION
  Report Type: Spontaneous
  Country: JP (occurrence: JP)
  Receive Date: 20130708
  Receipt Date: 20130719
  Transmission Date: 20140515
  Serious: Yes (Hospitalization, Other)
  Sender: FDA-Public Use
  Company Number: JP-JNJFOC-20130619166

PATIENT
  Age: 70 Year
  Sex: Male

DRUGS (1)
  1. RISPERDAL [Suspect]
     Indication: DELIRIUM
     Route: 048
     Dates: start: 201303, end: 201306

REACTIONS (4)
  - Hypertension [Recovered/Resolved]
  - Dysarthria [Unknown]
  - Inappropriate schedule of drug administration [Unknown]
  - Off label use [Unknown]
